FAERS Safety Report 18120408 (Version 15)
Quarter: 2021Q3

REPORT INFORMATION
  Report Type: Spontaneous
  Country: GB (occurrence: GB)
  Receive Date: 20200806
  Receipt Date: 20210929
  Transmission Date: 20211014
  Serious: Yes (Hospitalization, Other)
  Sender: FDA-Public Use
  Company Number: GB-MYLANLABS-2018M1088760

PATIENT
  Age: 24 Year
  Sex: Male

DRUGS (31)
  1. CLOZARIL [Suspect]
     Active Substance: CLOZAPINE
     Indication: SCHIZOPHRENIA
     Dosage: UNK
     Route: 048
     Dates: start: 20181115
  2. OLANZAPINE. [Suspect]
     Active Substance: OLANZAPINE
     Indication: PRODUCT USED FOR UNKNOWN INDICATION
     Dosage: UNK
     Route: 065
  3. SODIUM VALPROATE [Concomitant]
     Active Substance: VALPROATE SODIUM
     Dosage: 25 MILLIMOLE, QD
     Route: 065
  4. LITHIUM CITRATE. [Concomitant]
     Active Substance: LITHIUM CITRATE
     Indication: PRODUCT USED FOR UNKNOWN INDICATION
     Dosage: 1 DOSAGE FORM, QD (1 DF, QD (PM)
     Route: 005
  5. LITHIUM CITRATE. [Concomitant]
     Active Substance: LITHIUM CITRATE
     Dosage: 15ML (600 MG) NOCTE, QD15 MILLILITER, QD
     Route: 005
  6. SODIUM VALPROATE [Concomitant]
     Active Substance: VALPROATE SODIUM
     Dosage: 18.75 MILLILITER, QD
     Route: 065
  7. SODIUM VALPROATE [Concomitant]
     Active Substance: VALPROATE SODIUM
     Dosage: UNK UNK, PM
     Route: 065
  8. QUETIAPINE. [Concomitant]
     Active Substance: QUETIAPINE
     Dosage: 20 MILLIMOLE, PM
     Route: 065
  9. QUETIAPINE. [Concomitant]
     Active Substance: QUETIAPINE
     Dosage: 10 MILLILITER, QD (10 ML, AM)
     Route: 065
  10. CLONAZEPAM. [Concomitant]
     Active Substance: CLONAZEPAM
     Indication: PRODUCT USED FOR UNKNOWN INDICATION
     Dosage: 2.5 MILLILITER, QD
     Route: 048
  11. CLONAZEPAM. [Concomitant]
     Active Substance: CLONAZEPAM
     Dosage: 2.5 MILLILITER, Q4D
     Route: 065
  12. SODIUM VALPROATE [Concomitant]
     Active Substance: VALPROATE SODIUM
     Dosage: UNK UNK, AM
     Route: 065
  13. QUETIAPINE. [Concomitant]
     Active Substance: QUETIAPINE
     Dosage: 10 MILLILITER, QD
     Route: 065
  14. LITHIUM CITRATE. [Concomitant]
     Active Substance: LITHIUM CITRATE
     Dosage: 15 MILLILITER, QD (15 ML (600MG), DAILY)
     Route: 005
  15. LITHIUM CITRATE. [Concomitant]
     Active Substance: LITHIUM CITRATE
     Dosage: 1 DOSAGE FORM, QD (PM)
     Route: 005
  16. CLOZARIL [Suspect]
     Active Substance: CLOZAPINE
     Dosage: QD (DAILY)
     Route: 048
     Dates: start: 20191120, end: 20191202
  17. OLANZAPINE. [Suspect]
     Active Substance: OLANZAPINE
     Dosage: UNK
     Route: 065
     Dates: start: 201811
  18. SODIUM VALPROATE [Concomitant]
     Active Substance: VALPROATE SODIUM
     Indication: PRODUCT USED FOR UNKNOWN INDICATION
     Dosage: 18.75 MILLIMOLE, AM
     Route: 065
  19. CLOZARIL [Suspect]
     Active Substance: CLOZAPINE
     Dosage: QD (DAILY)
     Route: 048
     Dates: start: 20181212, end: 20181231
  20. OLANZAPINE. [Suspect]
     Active Substance: OLANZAPINE
     Dosage: UNK
     Route: 065
     Dates: start: 201801
  21. LI LIQUID [Concomitant]
     Dosage: 1 DF, QD (PM)
     Route: 005
  22. CLONAZEPAM. [Concomitant]
     Active Substance: CLONAZEPAM
     Dosage: 2.5 MILLILITER, QD
     Route: 048
  23. QUETIAPINE. [Concomitant]
     Active Substance: QUETIAPINE
     Dosage: 20 MILLILITER, QD
     Route: 065
  24. QUETIAPINE. [Concomitant]
     Active Substance: QUETIAPINE
     Dosage: UNK
     Route: 065
  25. LITHIUM CITRATE. [Concomitant]
     Active Substance: LITHIUM CITRATE
     Dosage: 1 DOSAGE FORM, QD
     Route: 005
  26. LITHIUM CITRATE. [Concomitant]
     Active Substance: LITHIUM CITRATE
     Dosage: 1 DOSAGE FORM, QD (PM)
     Route: 005
  27. LITHIUM CITRATE. [Concomitant]
     Active Substance: LITHIUM CITRATE
     Dosage: UNK
  28. OLANZAPINE. [Suspect]
     Active Substance: OLANZAPINE
     Dosage: UNK
     Route: 065
  29. LI LIQUID [Concomitant]
     Indication: PRODUCT USED FOR UNKNOWN INDICATION
     Dosage: UNK, PM
     Route: 005
  30. SODIUM VALPROATE [Concomitant]
     Active Substance: VALPROATE SODIUM
     Dosage: 25 MILLIMOLE, PM
     Route: 065
  31. QUETIAPINE. [Concomitant]
     Active Substance: QUETIAPINE
     Indication: PRODUCT USED FOR UNKNOWN INDICATION
     Dosage: 10 MILLILITER, AM
     Route: 065

REACTIONS (9)
  - Neutropenia [Recovered/Resolved]
  - Neutrophil count increased [Not Recovered/Not Resolved]
  - Abnormal behaviour [Unknown]
  - Malaise [Unknown]
  - Eosinophilia [Recovered/Resolved]
  - Aggression [Unknown]
  - Drug ineffective [Unknown]
  - White blood cell count increased [Not Recovered/Not Resolved]
  - White blood cell count decreased [Recovered/Resolved]

NARRATIVE: CASE EVENT DATE: 201811
